FAERS Safety Report 9985312 (Version 1)
Quarter: 2014Q1

REPORT INFORMATION
  Report Type: Spontaneous
  Country: CN (occurrence: CN)
  Receive Date: 20140307
  Receipt Date: 20140307
  Transmission Date: 20141002
  Serious: Yes (Other)
  Sender: FDA-Public Use
  Company Number: CN-ABBVIE-14K-035-1209505-00

PATIENT
  Age: 75 Year
  Sex: Male

DRUGS (1)
  1. DEPAKINE CHRONO [Suspect]
     Indication: EPILEPSY
     Dosage: EXTENDED RELEASE
     Route: 048
     Dates: start: 201310

REACTIONS (7)
  - Drug administration error [Recovered/Resolved]
  - Foaming at mouth [Recovered/Resolved]
  - Staring [Recovered/Resolved]
  - Epilepsy [Recovered/Resolved]
  - Unevaluable event [Recovered/Resolved]
  - Dyskinesia [Recovered/Resolved]
  - Convulsion [Recovered/Resolved]
